FAERS Safety Report 12766538 (Version 3)
Quarter: 2016Q4

REPORT INFORMATION
  Report Type: Spontaneous
  Country: GT (occurrence: GT)
  Receive Date: 20160921
  Receipt Date: 20161006
  Transmission Date: 20170207
  Serious: Yes (Hospitalization)
  Sender: FDA-Public Use
  Company Number: GT-ASTRAZENECA-2016SE98207

PATIENT
  Age: 41 Year
  Sex: Female

DRUGS (3)
  1. KOMBIGLYZE XR [Suspect]
     Active Substance: METFORMIN HYDROCHLORIDE\SAXAGLIPTIN HYDROCHLORIDE
     Indication: TYPE 2 DIABETES MELLITUS
     Dosage: 5/1000MG
     Route: 048
     Dates: start: 20160420, end: 20160731
  2. KOMBIGLYZE XR [Suspect]
     Active Substance: METFORMIN HYDROCHLORIDE\SAXAGLIPTIN HYDROCHLORIDE
     Indication: TYPE 2 DIABETES MELLITUS
     Dosage: 5/1000MG
     Route: 048
  3. CIPROXINA [Concomitant]
     Active Substance: CIPROFLOXACIN HYDROCHLORIDE\HYDROCORTISONE

REACTIONS (3)
  - Colitis ulcerative [Recovered/Resolved]
  - Therapy cessation [Unknown]
  - Infectious colitis [Recovered/Resolved]

NARRATIVE: CASE EVENT DATE: 20160802
